FAERS Safety Report 8186769-1 (Version None)
Quarter: 2012Q1

REPORT INFORMATION
  Report Type: 
  Country: None (occurrence: None)
  Receive Date: 20120306
  Receipt Date: 20120306
  Transmission Date: 20120608
  Serious: No
  Sender: FDA-Public Use
  Company Number: None

PATIENT
  Sex: Male
  Weight: 72.574 kg

DRUGS (1)
  1. SEROQUEL [Suspect]
     Indication: SCHIZOPHRENIA
     Dosage: 1200MG
     Route: 048
     Dates: start: 20110901, end: 20120305

REACTIONS (6)
  - EMOTIONAL DISORDER [None]
  - ANGER [None]
  - DEPRESSED MOOD [None]
  - HANGOVER [None]
  - INSOMNIA [None]
  - EUPHORIC MOOD [None]
